FAERS Safety Report 8978425 (Version 6)
Quarter: 2013Q4

REPORT INFORMATION
  Report Type: Report from Study
  Country: JP (occurrence: JP)
  Receive Date: 20121221
  Receipt Date: 20131218
  Transmission Date: 20140711
  Serious: Yes (Death)
  Sender: FDA-Public Use
  Company Number: JP-PFIZER INC-2012319170

PATIENT
  Age: 70 Year
  Sex: Female
  Weight: 54 kg

DRUGS (11)
  1. XALKORI [Suspect]
     Indication: NON-SMALL CELL LUNG CANCER
     Dosage: 250 MG, 2X/DAY
     Route: 048
     Dates: start: 20120801, end: 20120808
  2. XALKORI [Suspect]
     Dosage: 250 MG, 2X/DAY
     Route: 048
     Dates: start: 20120817, end: 20120907
  3. XALKORI [Suspect]
     Dosage: 250 MG, 1X/DAY
     Route: 048
     Dates: start: 20121114, end: 20121215
  4. FOSAMAC [Concomitant]
     Dosage: 35 MG, WEEKLY
     Route: 048
  5. LOXONIN [Concomitant]
     Dosage: 60 MG, 3X/DAY
     Route: 048
  6. OMEPRAL [Concomitant]
     Dosage: 20 MG, 1X/DAY
     Route: 048
     Dates: start: 20120814
  7. RINDERON [Concomitant]
     Dosage: 2 MG, 1X/DAY
     Route: 048
     Dates: start: 20120816
  8. MAGMITT [Concomitant]
     Dosage: 330 MG, 3X/DAY
     Route: 048
     Dates: start: 20120824
  9. LYRICA [Concomitant]
     Dosage: 75 MG, 2X/DAY
     Route: 048
     Dates: start: 20120924
  10. ZYPREXA [Concomitant]
     Dosage: 2.5 MG, 1X/DAY
     Route: 048
     Dates: start: 20120814
  11. CRAVIT [Concomitant]
     Dosage: 500 MG, 1X/DAY
     Route: 048
     Dates: start: 20121202, end: 20121211

REACTIONS (3)
  - Pulmonary embolism [Fatal]
  - Disease progression [Fatal]
  - Non-small cell lung cancer [Fatal]
